FAERS Safety Report 8961699 (Version 1)
Quarter: 2012Q4

REPORT INFORMATION
  Report Type: 
  Country: ES (occurrence: ES)
  Receive Date: 20121213
  Receipt Date: 20121213
  Transmission Date: 20130627
  Serious: Yes (Death, Hospitalization)
  Sender: FDA-Public Use
  Company Number: PHHY2012ES114599

PATIENT
  Age: 60 Year
  Sex: Male

DRUGS (2)
  1. AFINITOR [Suspect]
     Indication: RENAL CANCER METASTATIC
     Dosage: 10 mg, per day
     Dates: start: 201206, end: 20121129
  2. IMMUNOSUPPRESSANTS [Concomitant]

REACTIONS (10)
  - Septic shock [Fatal]
  - Multi-organ failure [Fatal]
  - Pyrexia [Fatal]
  - Renal abscess [Fatal]
  - Renal failure [Fatal]
  - Hyperkalaemia [Fatal]
  - Blood creatine increased [Fatal]
  - Retroperitoneal mass [Unknown]
  - Lymphadenopathy [Unknown]
  - Malignant neoplasm progression [Unknown]
